FAERS Safety Report 4416011-6 (Version None)
Quarter: 2004Q3

REPORT INFORMATION
  Report Type: 
  Country: None (occurrence: None)
  Receive Date: 20040802
  Receipt Date: 20040719
  Transmission Date: 20050211
  Serious: Yes (Hospitalization, Disabling)
  Sender: FDA-Public Use
  Company Number: 04P-150-0264623-00

PATIENT
  Age: 39 Year
  Sex: Male

DRUGS (2)
  1. KALETRA [Suspect]
     Indication: HIV INFECTION
     Dosage: 3 CAPSULE, 2 IN 1 D, PER ORAL
     Route: 048
     Dates: start: 20030109, end: 20040607
  2. SERETIDE DISCUS [Suspect]
     Indication: ASTHMA
     Dosage: 2 DOSAGE FORMS, 2 IN 1 D
     Dates: start: 20020101

REACTIONS (7)
  - ADRENAL DISORDER [None]
  - BLOOD GLUCOSE INCREASED [None]
  - CUSHING'S SYNDROME [None]
  - DRUG INTERACTION [None]
  - GENERAL PHYSICAL CONDITION ABNORMAL [None]
  - GLYCOSYLATED HAEMOGLOBIN INCREASED [None]
  - SPINAL COMPRESSION FRACTURE [None]
